FAERS Safety Report 13023151 (Version 7)
Quarter: 2017Q2

REPORT INFORMATION
  Report Type: Spontaneous
  Country: BR (occurrence: BR)
  Receive Date: 20161213
  Receipt Date: 20170407
  Transmission Date: 20170830
  Serious: Yes (Other)
  Sender: FDA-Public Use
  Company Number: BR-ALEXION PHARMACEUTICALS INC-A201609704

PATIENT
  Age: 56 Year
  Sex: Female

DRUGS (3)
  1. SOLIRIS [Suspect]
     Active Substance: ECULIZUMAB
     Indication: HAEMOLYTIC URAEMIC SYNDROME
     Dosage: 900 MG, QW
     Route: 042
     Dates: start: 20151118, end: 20151217
  2. AMOXICILLIN A [Concomitant]
     Indication: PROPHYLAXIS
     Dosage: 500 MG, UNK
     Route: 048
  3. SOLIRIS [Suspect]
     Active Substance: ECULIZUMAB
     Dosage: 1200 MG, Q2W
     Route: 042
     Dates: start: 20151223

REACTIONS (16)
  - Oxygen saturation decreased [Recovering/Resolving]
  - Renal impairment [Unknown]
  - Head injury [Recovered/Resolved]
  - Headache [Not Recovered/Not Resolved]
  - Dyspnoea [Recovering/Resolving]
  - Haemorrhage [Unknown]
  - Pain [Not Recovered/Not Resolved]
  - Productive cough [Recovering/Resolving]
  - Decreased appetite [Not Recovered/Not Resolved]
  - Pneumonia [Recovering/Resolving]
  - Somnolence [Recovering/Resolving]
  - Fatigue [Recovering/Resolving]
  - Incorrect dose administered [Unknown]
  - Pyrexia [Not Recovered/Not Resolved]
  - Back pain [Recovering/Resolving]
  - Asthenia [Recovering/Resolving]

NARRATIVE: CASE EVENT DATE: 201611
